FAERS Safety Report 9702273 (Version 3)
Quarter: 2013Q4

REPORT INFORMATION
  Report Type: Spontaneous
  Country: US (occurrence: None)
  Receive Date: 20131119
  Receipt Date: 20131224
  Transmission Date: 20140711
  Serious: Yes (Other)
  Sender: FDA-Public Use
  Company Number: AUR-APL-2013-09511

PATIENT
  Age: 60 Year
  Sex: Female

DRUGS (4)
  1. METOPROLOL [Suspect]
     Indication: PRODUCT USED FOR UNKNOWN INDICATION
     Dates: start: 20131017, end: 20131113
  2. ZOLPIDEM (ZOLPIDEM) [Concomitant]
  3. AMITRIPTYLINE (AMITRIPTYLINE) [Concomitant]
  4. BUDESONIDE (BUDESONIDE) [Concomitant]

REACTIONS (3)
  - Palpitations [None]
  - Nausea [None]
  - Presyncope [None]
